FAERS Safety Report 9167672 (Version 1)
Quarter: 2013Q1

REPORT INFORMATION
  Report Type: Spontaneous
  Country: US (occurrence: US)
  Receive Date: 20130318
  Receipt Date: 20130318
  Transmission Date: 20140127
  Serious: No
  Sender: FDA-Public Use
  Company Number: US-PFIZER INC-2013084453

PATIENT
  Age: 87 Year
  Sex: Female
  Weight: 54.42 kg

DRUGS (1)
  1. ADVIL [Suspect]
     Indication: BACK PAIN
     Dosage: TWO 200 MG AT A TIME, AS NEEDED
     Route: 048
     Dates: end: 2013

REACTIONS (1)
  - Drug ineffective [Unknown]
